FAERS Safety Report 21356409 (Version 1)
Quarter: 2022Q3

REPORT INFORMATION
  Report Type: Spontaneous
  Country: JP (occurrence: JP)
  Receive Date: 20220920
  Receipt Date: 20220920
  Transmission Date: 20221026
  Serious: Yes (Hospitalization)
  Sender: FDA-Public Use
  Company Number: JP-PFIZER INC-PV202200066620

PATIENT
  Age: 76 Year
  Sex: Female

DRUGS (1)
  1. TOVIAZ [Suspect]
     Active Substance: FESOTERODINE FUMARATE
     Dosage: UNK
     Route: 048
     Dates: end: 2022

REACTIONS (1)
  - Renal abscess [Recovered/Resolved]

NARRATIVE: CASE EVENT DATE: 20220101
